FAERS Safety Report 8392038-7 (Version None)
Quarter: 2012Q2

REPORT INFORMATION
  Report Type: 
  Country: None (occurrence: None)
  Receive Date: 20120529
  Receipt Date: 20120523
  Transmission Date: 20120825
  Serious: Yes (Other)
  Sender: FDA-Public Use
  Company Number: AT-ROCHE-1071795

PATIENT
  Age: 28 Year
  Sex: Male

DRUGS (9)
  1. HALDOL [Suspect]
     Dates: start: 20120321
  2. LYRICA [Suspect]
     Indication: PRODUCT USED FOR UNKNOWN INDICATION
     Dates: start: 20120213, end: 20120216
  3. CLONAZEPAM [Suspect]
     Indication: PRODUCT USED FOR UNKNOWN INDICATION
     Dosage: DOSE REDUCED
     Dates: start: 20120318, end: 20120318
  4. CLONAZEPAM [Suspect]
     Dates: start: 20120319
  5. HALDOL [Suspect]
     Indication: PRODUCT USED FOR UNKNOWN INDICATION
     Dosage: DOSE INCREASED
     Dates: start: 20120208
  6. TOLVON [Suspect]
     Indication: PRODUCT USED FOR UNKNOWN INDICATION
     Dates: start: 20120124
  7. ESCITALOPRAM [Suspect]
     Indication: PRODUCT USED FOR UNKNOWN INDICATION
     Dates: start: 20120125
  8. HALDOL [Suspect]
     Dosage: DOSE REDUCED
     Dates: start: 20120209, end: 20120320
  9. LYRICA [Suspect]
     Dates: start: 20120217

REACTIONS (1)
  - EXTRAPYRAMIDAL DISORDER [None]
